FAERS Safety Report 17570759 (Version 3)
Quarter: 2021Q1

REPORT INFORMATION
  Report Type: Spontaneous
  Country: US (occurrence: US)
  Receive Date: 20200323
  Receipt Date: 20210104
  Transmission Date: 20210419
  Serious: Yes (Disabling, Other)
  Sender: FDA-Public Use
  Company Number: US-PFIZER INC-2020001133

PATIENT
  Age: 35 Year
  Sex: Female

DRUGS (3)
  1. ESTRING [Suspect]
     Active Substance: ESTRADIOL
     Indication: VAGINAL INFECTION
     Dosage: 1 DF, MONTHLY (INSERT 1 RING PER MONTH)
     Route: 067
  2. ESTRING [Suspect]
     Active Substance: ESTRADIOL
     Indication: VAGINAL DISCHARGE
     Dosage: 1 RING VAGINALLY EVERY 3 MONTHS
     Route: 067
     Dates: start: 20200818
  3. ESTRING [Suspect]
     Active Substance: ESTRADIOL
     Indication: ATROPHIC VULVOVAGINITIS

REACTIONS (2)
  - Ankle fracture [Unknown]
  - Off label use [Unknown]
